FAERS Safety Report 20683875 (Version 2)
Quarter: 2022Q2

REPORT INFORMATION
  Report Type: Spontaneous
  Country: US (occurrence: None)
  Receive Date: 20220407
  Receipt Date: 20220427
  Transmission Date: 20220721
  Serious: No
  Sender: FDA-Public Use
  Company Number: 2022A111623

PATIENT
  Sex: Male
  Weight: 111.1 kg

DRUGS (2)
  1. BYDUREON BCISE [Suspect]
     Active Substance: EXENATIDE
     Indication: Type 2 diabetes mellitus
     Route: 058
  2. BYDUREON BCISE [Suspect]
     Active Substance: EXENATIDE
     Indication: Glycosylated haemoglobin
     Route: 058

REACTIONS (8)
  - Injection site mass [Not Recovered/Not Resolved]
  - Glycosylated haemoglobin abnormal [Unknown]
  - Drug ineffective [Not Recovered/Not Resolved]
  - Wrong technique in device usage process [Unknown]
  - Device use issue [Unknown]
  - Drug dose omission by device [Unknown]
  - Device leakage [Unknown]
  - Device delivery system issue [Unknown]
